FAERS Safety Report 4713181-7 (Version None)
Quarter: 2005Q3

REPORT INFORMATION
  Report Type: 
  Country: None (occurrence: None)
  Receive Date: 20050712
  Receipt Date: 20050712
  Transmission Date: 20060218
  Serious: Yes (Death)
  Sender: FDA-Public Use
  Company Number: None

PATIENT
  Sex: Male
  Weight: 63.5036 kg

DRUGS (4)
  1. MEGACE [Suspect]
     Indication: WEIGHT DECREASED
     Dosage: PO QD
     Route: 048
  2. GEMZAR [Concomitant]
  3. TARCEVA [Concomitant]
  4. LEVAQUIN [Concomitant]

REACTIONS (2)
  - DEHYDRATION [None]
  - PAIN [None]
